FAERS Safety Report 9899447 (Version 1)
Quarter: 2014Q1

REPORT INFORMATION
  Report Type: Spontaneous
  Country: US (occurrence: US)
  Receive Date: 20140214
  Receipt Date: 20140214
  Transmission Date: 20141002
  Serious: Yes (Other)
  Sender: FDA-Public Use
  Company Number: US-PFIZER INC-2014042934

PATIENT
  Age: 67 Year
  Sex: Male
  Weight: 116 kg

DRUGS (2)
  1. ALDACTONE [Suspect]
     Indication: HYPERTENSION
     Dosage: 25 MG, 1X/DAY
     Route: 048
  2. COREG [Concomitant]
     Dosage: UNK

REACTIONS (3)
  - Lung neoplasm malignant [Unknown]
  - Anaemia [Not Recovered/Not Resolved]
  - Depression [Unknown]
